FAERS Safety Report 9217239 (Version 1)
Quarter: 2013Q2

REPORT INFORMATION
  Report Type: Spontaneous
  Country: US (occurrence: None)
  Receive Date: 20130404
  Receipt Date: 20130404
  Transmission Date: 20140414
  Serious: Yes (Hospitalization)
  Sender: FDA-Public Use
  Company Number: 001503575A

PATIENT
  Age: 77 Year
  Sex: Female

DRUGS (4)
  1. MB* ANTIOXIDANT DAY CREME SPF 20 [Suspect]
     Dosage: TWICE DAILY DERMAL
     Dates: start: 20121217, end: 20130301
  2. MB* SKIN BRIGHTENING DECOLLETE+NECK TREATMENT SPF 15 [Suspect]
     Dosage: TWICE DAILY DERMAL
     Dates: start: 20121217, end: 20130301
  3. ATENOLOL [Concomitant]
  4. MEANINGFUL BEAUTY VITAMIN SUPPLEMENTS [Concomitant]

REACTIONS (1)
  - Rash morbilliform [None]
